FAERS Safety Report 7377732-9 (Version None)
Quarter: 2011Q1

REPORT INFORMATION
  Report Type: 
  Country: None (occurrence: None)
  Receive Date: 20110316
  Receipt Date: 20110304
  Transmission Date: 20110831
  Serious: Yes (Hospitalization, Other)
  Sender: FDA-Public Use
  Company Number: ACO_22075_2011

PATIENT
  Age: 64 Year
  Sex: Female

DRUGS (14)
  1. METOPROLOL (METOPROLOL) [Concomitant]
  2. OXYBUTYNIN [Concomitant]
  3. CENTRUM SILVER (ASCORBIC ACID, CALCIUM, MINERALS NOS, RETINOL, TOCOPHE [Concomitant]
  4. ZANAFLEX [Suspect]
     Indication: PRODUCT USED FOR UNKNOWN INDICATION
  5. DILTIAZEM [Concomitant]
  6. CALCIUM (CALCIUM) [Concomitant]
  7. VITAMIN D [Concomitant]
  8. SYNTHROID [Concomitant]
  9. VITAMIN E [Concomitant]
  10. ENALAPRIL MALEATE [Concomitant]
  11. ASCORBIC ACID [Concomitant]
  12. AMPYRA [Suspect]
     Indication: PRODUCT USED FOR UNKNOWN INDICATION
     Dosage: 10 MG, DAILY
     Dates: start: 20110214, end: 20110201
  13. AMPYRA [Suspect]
     Indication: PRODUCT USED FOR UNKNOWN INDICATION
     Dosage: 10 MG, DAILY
     Dates: start: 20100131, end: 20110213
  14. AMANTADINE HCL [Concomitant]

REACTIONS (12)
  - TREMOR [None]
  - RENAL DISORDER [None]
  - THERAPEUTIC RESPONSE UNEXPECTED [None]
  - MUSCLE TWITCHING [None]
  - AMNESIA [None]
  - URINARY TRACT INFECTION [None]
  - DRUG INTERACTION [None]
  - DYSKINESIA [None]
  - ARRHYTHMIA [None]
  - INAPPROPRIATE SCHEDULE OF DRUG ADMINISTRATION [None]
  - SYNCOPE [None]
  - ADVERSE DRUG REACTION [None]
